FAERS Safety Report 24900840 (Version 2)
Quarter: 2025Q1

REPORT INFORMATION
  Report Type: Spontaneous
  Country: US (occurrence: US)
  Receive Date: 20250129
  Receipt Date: 20250207
  Transmission Date: 20250409
  Serious: Yes (Other)
  Sender: DAIICHI
  Company Number: US-DSJP-DS-2025-121977-US

PATIENT
  Sex: Male

DRUGS (1)
  1. ENHERTU [Suspect]
     Active Substance: FAM-TRASTUZUMAB DERUXTECAN-NXKI
     Indication: Salivary gland cancer
     Route: 065

REACTIONS (4)
  - Ascites [Unknown]
  - Generalised oedema [Unknown]
  - Blood potassium decreased [Unknown]
  - Blood magnesium decreased [Unknown]
